FAERS Safety Report 8312533-6 (Version None)
Quarter: 2012Q2

REPORT INFORMATION
  Report Type: 
  Country: None (occurrence: None)
  Receive Date: 20120425
  Receipt Date: 20120419
  Transmission Date: 20120825
  Serious: Yes (Hospitalization, Other)
  Sender: FDA-Public Use
  Company Number: BR-ABBOTT-11P-020-0876764-00

PATIENT
  Sex: Male
  Weight: 70 kg

DRUGS (12)
  1. AZATHIOPRINE [Concomitant]
     Dosage: 3 TABLET DAILY
     Dates: start: 20120416
  2. MESALAMINE [Concomitant]
     Route: 042
  3. AZATHIOPRINE [Concomitant]
     Indication: CROHN'S DISEASE
     Dosage: 2 TABLET DAILY
  4. HUMIRA [Suspect]
     Dosage: 14 DAYS LATER
  5. MESALAMINE [Concomitant]
     Indication: PRODUCT USED FOR UNKNOWN INDICATION
     Route: 048
     Dates: start: 20111001
  6. MESALAMINE [Concomitant]
     Indication: PRODUCT USED FOR UNKNOWN INDICATION
  7. MESALAMINE [Concomitant]
  8. UNSPECIFIED MEDICATIONS [Concomitant]
     Indication: PROCOAGULANT THERAPY
     Dosage: AT HOSPITAL
  9. HUMIRA [Suspect]
     Indication: CROHN'S DISEASE
     Dosage: INDUCTION DOSE
     Dates: start: 20111110
  10. UNSPECIFIED MEDICATIONS [Concomitant]
     Dosage: AT HOSPITAL
     Route: 042
  11. HUMIRA [Suspect]
     Dosage: 14 DAYS LATER
     Route: 058
  12. UNSPECIFIED DRUG [Concomitant]
     Indication: PRODUCT USED FOR UNKNOWN INDICATION
     Route: 054
     Dates: start: 20111001

REACTIONS (2)
  - UNEVALUABLE EVENT [None]
  - DIARRHOEA HAEMORRHAGIC [None]
